FAERS Safety Report 20343022 (Version 6)
Quarter: 2022Q2

REPORT INFORMATION
  Report Type: Report from Study
  Country: CA (occurrence: CA)
  Receive Date: 20220117
  Receipt Date: 20220426
  Transmission Date: 20220721
  Serious: Yes (Hospitalization, Other)
  Sender: FDA-Public Use
  Company Number: CA-TAKEDA-CA202011769

PATIENT
  Age: 17 Year
  Sex: Male
  Weight: 51 kg

DRUGS (11)
  1. IDURSULFASE [Suspect]
     Active Substance: IDURSULFASE
     Indication: Mucopolysaccharidosis II
     Dosage: 4 DOSAGE FORM, 1/WEEK
     Route: 065
     Dates: start: 20070501
  2. IDURSULFASE [Suspect]
     Active Substance: IDURSULFASE
     Dosage: 24.4 MILLIGRAM, 1/WEEK
     Route: 065
     Dates: start: 20070501
  3. IDURSULFASE [Suspect]
     Active Substance: IDURSULFASE
     Dosage: 24.4 MILLIGRAM, 1/WEEK
     Route: 065
     Dates: start: 20070501
  4. IDURSULFASE [Suspect]
     Active Substance: IDURSULFASE
     Dosage: 24.4 MILLIGRAM, 1/WEEK
     Route: 065
     Dates: start: 20070501
  5. IDURSULFASE [Suspect]
     Active Substance: IDURSULFASE
     Dosage: 24 MILLIGRAM, 1/WEEK
     Route: 065
     Dates: start: 20070501
  6. IDURSULFASE [Suspect]
     Active Substance: IDURSULFASE
     Dosage: 4 DOSAGE FORM, 1/WEEK
     Route: 065
     Dates: start: 20070501
  7. IDURSULFASE [Suspect]
     Active Substance: IDURSULFASE
     Dosage: 25 MILLIGRAM, 1/WEEK
     Route: 065
     Dates: start: 20070501
  8. IDURSULFASE [Suspect]
     Active Substance: IDURSULFASE
     Dosage: 25 MILLIGRAM, 1/WEEK
     Route: 065
     Dates: start: 20070501
  9. IDURSULFASE [Suspect]
     Active Substance: IDURSULFASE
     Dosage: 4 DOSAGE FORM, 1/WEEK
     Route: 050
     Dates: start: 20070501
  10. IDURSULFASE [Suspect]
     Active Substance: IDURSULFASE
     Dosage: 24.4 MILLIGRAM, 1/WEEK
     Route: 065
     Dates: start: 20200326
  11. SODIUM CHLORIDE [Concomitant]
     Active Substance: SODIUM CHLORIDE
     Indication: Product used for unknown indication
     Route: 065

REACTIONS (28)
  - Pneumonia [Not Recovered/Not Resolved]
  - COVID-19 [Not Recovered/Not Resolved]
  - Product dose omission issue [Unknown]
  - Heart rate increased [Unknown]
  - Foot fracture [Recovered/Resolved]
  - Blood pressure increased [Unknown]
  - Respiratory rate increased [Recovered/Resolved]
  - Sluggishness [Unknown]
  - Blood pressure decreased [Unknown]
  - Pyrexia [Unknown]
  - Poor venous access [Recovered/Resolved]
  - Catheter site erythema [Recovering/Resolving]
  - Catheter site discharge [Recovering/Resolving]
  - Aggression [Unknown]
  - Underdose [Unknown]
  - Skin warm [Recovered/Resolved]
  - Dry skin [Recovered/Resolved]
  - Skin discolouration [Recovered/Resolved]
  - Device occlusion [Recovered/Resolved]
  - Infusion related reaction [Unknown]
  - Rash [Unknown]
  - Cardiac disorder [Not Recovered/Not Resolved]
  - Heart rate decreased [Unknown]
  - Restlessness [Unknown]
  - Abnormal behaviour [Unknown]
  - Treatment noncompliance [Unknown]
  - Product administration interrupted [Unknown]
  - Wrong technique in product usage process [Unknown]

NARRATIVE: CASE EVENT DATE: 20200326
